FAERS Safety Report 7460273-8 (Version None)
Quarter: 2011Q2

REPORT INFORMATION
  Report Type: 
  Country: None (occurrence: None)
  Receive Date: 20110505
  Receipt Date: 20110425
  Transmission Date: 20111010
  Serious: Yes (Other)
  Sender: FDA-Public Use
  Company Number: FR-GENENTECH-317869

PATIENT
  Age: 62 Year
  Sex: Male

DRUGS (1)
  1. RITUXIMAB [Suspect]
     Indication: CRYOGLOBULINAEMIA
     Dosage: 375 MG/M2, Q6M
     Route: 065

REACTIONS (4)
  - PURPURA [None]
  - RENAL FAILURE [None]
  - PYELONEPHRITIS [None]
  - NEURALGIA [None]
